FAERS Safety Report 9824445 (Version 2)
Quarter: 2014Q1

REPORT INFORMATION
  Report Type: Spontaneous
  Country: US (occurrence: US)
  Receive Date: 20140116
  Receipt Date: 20140116
  Transmission Date: 20141002
  Serious: No
  Sender: FDA-Public Use
  Company Number: US-GILEAD-2011-0039973

PATIENT
  Age: 65 Year
  Sex: Female
  Weight: 102.51 kg

DRUGS (8)
  1. LETAIRIS [Suspect]
     Indication: PULMONARY HYPERTENSION
     Route: 048
     Dates: start: 20101026, end: 20110329
  2. KLOR-CON [Concomitant]
     Indication: PULMONARY HYPERTENSION
  3. TYVASO [Concomitant]
     Indication: PULMONARY HYPERTENSION
  4. ADCIRCA [Concomitant]
     Indication: PULMONARY HYPERTENSION
  5. SOTALOL [Concomitant]
     Indication: PULMONARY HYPERTENSION
  6. PRADAXA [Concomitant]
     Indication: PULMONARY HYPERTENSION
  7. ALDACTONE [Concomitant]
     Indication: PULMONARY HYPERTENSION
  8. LASIX [Concomitant]
     Indication: PULMONARY HYPERTENSION

REACTIONS (9)
  - Right atrial pressure increased [Unknown]
  - Pulmonary arterial wedge pressure increased [Unknown]
  - Diastolic dysfunction [Unknown]
  - Pulmonary arterial hypertension [Unknown]
  - Heart rate increased [Recovering/Resolving]
  - Dizziness [Recovering/Resolving]
  - Fluid retention [Unknown]
  - Dyspnoea exertional [Recovered/Resolved]
  - Oedema peripheral [Recovering/Resolving]
